FAERS Safety Report 22035749 (Version 1)
Quarter: 2023Q1

REPORT INFORMATION
  Report Type: Spontaneous
  Country: US (occurrence: None)
  Receive Date: 20230223
  Receipt Date: 20230223
  Transmission Date: 20230417
  Serious: Yes (Disabling)
  Sender: FDA-Public Use
  Company Number: None

PATIENT
  Age: 74 Year
  Sex: Female
  Weight: 93.89 kg

DRUGS (13)
  1. METOPROLOL SUCCINATE [Suspect]
     Active Substance: METOPROLOL SUCCINATE
     Dosage: FREQUENCY : DAILY;?
     Route: 048
  2. LEVOXYL [Concomitant]
     Active Substance: LEVOTHYROXINE SODIUM
  3. MESALAMINE [Concomitant]
     Active Substance: MESALAMINE
  4. hydrochlorothinide [Concomitant]
  5. AZELASTINE [Concomitant]
     Active Substance: AZELASTINE
  6. AMOXICILLIN [Concomitant]
     Active Substance: AMOXICILLIN
  7. citrus bio slavonoid [Concomitant]
  8. L glutahione [Concomitant]
  9. MELATONIN [Concomitant]
  10. OMEGA 3 [Concomitant]
     Active Substance: CAPSAICIN
  11. VITAMIN C [Concomitant]
     Active Substance: ASCORBIC ACID
  12. VITAMIN D NOS [Concomitant]
     Active Substance: VITAMIN D NOS
  13. vit b [Concomitant]

REACTIONS (1)
  - Neuropathy peripheral [None]
